FAERS Safety Report 19555520 (Version 2)
Quarter: 2021Q3

REPORT INFORMATION
  Report Type: Spontaneous
  Country: ES (occurrence: ES)
  Receive Date: 20210715
  Receipt Date: 20210810
  Transmission Date: 20211014
  Serious: No
  Sender: FDA-Public Use
  Company Number: ES-PFIZER INC-2021751033

PATIENT
  Sex: Female

DRUGS (1)
  1. SOMAVERT [Suspect]
     Active Substance: PEGVISOMANT
     Dosage: UNK
     Route: 058
     Dates: start: 2007

REACTIONS (4)
  - Product dose omission issue [Recovered/Resolved]
  - Injury associated with device [Unknown]
  - Needle issue [Unknown]
  - Injection site pain [Unknown]
